FAERS Safety Report 18877699 (Version 1)
Quarter: 2021Q1

REPORT INFORMATION
  Report Type: Spontaneous
  Country: US (occurrence: US)
  Receive Date: 20210210
  Receipt Date: 20210210
  Transmission Date: 20210420
  Serious: Yes (Death)
  Sender: FDA-Public Use
  Company Number: None

PATIENT
  Age: 53 Year
  Sex: Female

DRUGS (2)
  1. REMDESIVIR 100MG [Suspect]
     Active Substance: REMDESIVIR
     Dosage: DOSE: 200MGX1, 100MG?ROUTE: IVPB
     Dates: start: 20201229, end: 20210101
  2. ZITHROMAX [Suspect]
     Active Substance: AZITHROMYCIN DIHYDRATE
     Dosage: ?          OTHER ROUTE:IVPB?
     Dates: start: 20201228, end: 20210102

REACTIONS (1)
  - Death [None]

NARRATIVE: CASE EVENT DATE: 20210102
